FAERS Safety Report 10435185 (Version 1)
Quarter: 2014Q3

REPORT INFORMATION
  Report Type: Spontaneous
  Country: JP (occurrence: JP)
  Receive Date: 20140907
  Receipt Date: 20140907
  Transmission Date: 20150326
  Serious: No
  Sender: FDA-Public Use
  Company Number: PHHY2012JP135809

PATIENT
  Age: 76 Year
  Sex: Male

DRUGS (2)
  1. TASIGNA [Suspect]
     Active Substance: NILOTINIB
     Indication: CHRONIC MYELOID LEUKAEMIA
  2. GLIVEC [Suspect]
     Active Substance: IMATINIB MESYLATE

REACTIONS (1)
  - Electrocardiogram QT prolonged [Unknown]
